FAERS Safety Report 5302539-3 (Version None)
Quarter: 2007Q2

REPORT INFORMATION
  Report Type: 
  Country: None (occurrence: None)
  Receive Date: 20070413
  Receipt Date: 20070405
  Transmission Date: 20071010
  Serious: Yes (Hospitalization)
  Sender: FDA-Public Use
  Company Number: S07-USA-00232-01

PATIENT
  Age: 27 Year
  Sex: Male
  Weight: 120.2032 kg

DRUGS (1)
  1. LEXAPRO [Suspect]
     Indication: DEPRESSION
     Dosage: 20 MG QD PO
     Route: 048
     Dates: start: 20061201, end: 20070112

REACTIONS (3)
  - CARDIAC ARREST [None]
  - FALL [None]
  - SYNCOPE [None]
